FAERS Safety Report 6906822-7 (Version None)
Quarter: 2010Q3

REPORT INFORMATION
  Report Type: 
  Country: None (occurrence: None)
  Receive Date: 20100804
  Receipt Date: 20100723
  Transmission Date: 20110219
  Serious: Yes (Hospitalization, Other)
  Sender: FDA-Public Use
  Company Number: US-ELI_LILLY_AND_COMPANY-US200906005623

PATIENT
  Sex: Female
  Weight: 99.32 kg

DRUGS (18)
  1. BYETTA [Suspect]
     Dosage: 5 UG, 2/D
     Dates: start: 20050101, end: 20071001
  2. GLUCOPHAGE [Concomitant]
     Indication: DIABETES MELLITUS
     Dosage: UNK, 2/D
  3. INSULIN [Concomitant]
  4. HYDROCHLOROTHIAZIDE [Concomitant]
     Dosage: UNK, DAILY (1/D)
  5. TYLENOL                                 /SCH/ [Concomitant]
     Indication: PAIN
     Dosage: UNK, AS NEEDED
  6. PRILOSEC [Concomitant]
     Indication: GASTROOESOPHAGEAL REFLUX DISEASE
     Dosage: 20 MG, DAILY (1/D)
  7. NEURONTIN [Concomitant]
     Indication: NEURALGIA
  8. TOPROL-XL [Concomitant]
     Dosage: 25 MG, DAILY (1/D)
  9. ZETIA [Concomitant]
     Dosage: 10 MG, DAILY (1/D)
  10. ASPIRIN [Concomitant]
     Dosage: 81 MG, DAILY (1/D)
  11. LANTUS [Concomitant]
     Dosage: UNK, DAILY (1/D)
  12. ZOLOFT [Concomitant]
  13. IBUPROFEN [Concomitant]
  14. AMBIEN [Concomitant]
  15. LEVOXYL [Concomitant]
  16. METRONIDAZOLE [Concomitant]
  17. COLACE [Concomitant]
     Indication: ABDOMINAL DISCOMFORT
  18. ALBUTEROL [Concomitant]
     Indication: ASTHMA

REACTIONS (7)
  - CHOLELITHIASIS [None]
  - HEPATIC LESION [None]
  - HYPOVOLAEMIA [None]
  - NODULE [None]
  - OFF LABEL USE [None]
  - PANCREATITIS [None]
  - RENAL FAILURE ACUTE [None]
